FAERS Safety Report 18995335 (Version 1)
Quarter: 2021Q1

REPORT INFORMATION
  Report Type: Spontaneous
  Country: US (occurrence: US)
  Receive Date: 20210305
  Receipt Date: 20210305
  Transmission Date: 20210420
  Serious: Yes (Hospitalization)
  Sender: FDA-Public Use
  Company Number: None

PATIENT
  Age: 70 Year
  Sex: Male
  Weight: 96.3 kg

DRUGS (11)
  1. LEUPROLIDE [Concomitant]
     Active Substance: LEUPROLIDE
     Dates: start: 20210224, end: 20210224
  2. ALBUTEROL. [Concomitant]
     Active Substance: ALBUTEROL
  3. PROSTATE HDR BRACHYTHERAPY [Concomitant]
     Dates: start: 20210205, end: 20210205
  4. LOSARTAN. [Concomitant]
     Active Substance: LOSARTAN
  5. LEVOTHYROXINE. [Concomitant]
     Active Substance: LEVOTHYROXINE
  6. PFIZER?BIONTECH COVID?19 VACCINE [Suspect]
     Active Substance: TOZINAMERAN
     Indication: COVID-19 IMMUNISATION
     Dosage: ?          OTHER FREQUENCY:2 DOSES, 1 MONTH;?
     Route: 030
     Dates: start: 20210303, end: 20210303
  7. DOCUSATE?SENNA [Concomitant]
  8. NIVOLUMAB [Suspect]
     Active Substance: NIVOLUMAB
     Indication: PROSTATE CANCER
     Dosage: ?          OTHER FREQUENCY:2 WEEKS;?
     Route: 041
     Dates: start: 20210108
  9. TAMSULOSIN [Concomitant]
     Active Substance: TAMSULOSIN
  10. ATORVASTATIN [Concomitant]
     Active Substance: ATORVASTATIN
  11. CELECOXIB. [Concomitant]
     Active Substance: CELECOXIB

REACTIONS (2)
  - Pulmonary oedema [None]
  - Pneumonia [None]

NARRATIVE: CASE EVENT DATE: 20210303
